FAERS Safety Report 6175403-8 (Version None)
Quarter: 2009Q2

REPORT INFORMATION
  Report Type: 
  Country: None (occurrence: None)
  Receive Date: 20090429
  Receipt Date: 20090422
  Transmission Date: 20091009
  Serious: Yes (Hospitalization)
  Sender: FDA-Public Use
  Company Number: CHPA2009US10069

PATIENT
  Age: 59 Year
  Sex: Male

DRUGS (5)
  1. HYOSCINE HBR HYT [Suspect]
     Indication: SMOKING CESSATION THERAPY
     Dosage: 1 PATCH Q72H, TRANSDERMAL
     Route: 062
  2. HYOSCINE HBR HYT [Suspect]
     Indication: SMOKING CESSATION THERAPY
     Dosage: 0.0065 MG, TID; 3 INJECTIONS, ONCE, INJECTION NOS
  3. ATROPINE [Suspect]
     Indication: SMOKING CESSATION THERAPY
     Dosage: 0.0194 MG, TID; 3 INJECTIONS, ONCE, INJECTION NOS
  4. PHENOBARBITAL TAB [Suspect]
     Indication: SMOKING CESSATION THERAPY
     Dosage: 16.2 MG, TID
  5. HYOSCYAMINE SULFATE (HYOSCYAMINE SULFATE) [Suspect]
     Indication: SMOKING CESSATION THERAPY
     Dosage: 0.1037 MG, TID

REACTIONS (9)
  - DELUSION [None]
  - DIZZINESS [None]
  - HALLUCINATION [None]
  - HOMICIDAL IDEATION [None]
  - IRRITABILITY [None]
  - SUICIDAL IDEATION [None]
  - VERBAL ABUSE [None]
  - VIOLENCE-RELATED SYMPTOM [None]
  - VISION BLURRED [None]
